FAERS Safety Report 9166944 (Version 3)
Quarter: 2013Q2

REPORT INFORMATION
  Report Type: Report from Study
  Country: US (occurrence: US)
  Receive Date: 20130317
  Receipt Date: 20130420
  Transmission Date: 20140414
  Serious: Yes (Death)
  Sender: FDA-Public Use
  Company Number: US-B.I. PHARMACEUTICALS,INC./RIDGEFIELD-2013-RU-00233BP

PATIENT
  Age: 58 Year
  Sex: Male
  Weight: 62.7 kg

DRUGS (6)
  1. PLACEBO [Suspect]
     Indication: CHRONIC OBSTRUCTIVE PULMONARY DISEASE
     Dates: start: 20130205, end: 20130225
  2. TIOTROPIUM BROMIDE [Suspect]
     Indication: CHRONIC OBSTRUCTIVE PULMONARY DISEASE
     Dosage: 18 MCG
     Route: 055
     Dates: start: 20130205, end: 20130225
  3. ASPIRIN [Concomitant]
     Indication: SINUS HEADACHE
     Dosage: 325 MG
     Route: 048
  4. ALBUTEROL [Concomitant]
     Indication: CHRONIC OBSTRUCTIVE PULMONARY DISEASE
     Dosage: 90 MCG
     Route: 055
  5. NEURONTIN [Concomitant]
     Indication: FROSTBITE
     Dosage: 900 MG
     Route: 048
     Dates: start: 201211
  6. IBUPROFEN [Concomitant]
     Indication: FROSTBITE
     Dosage: 600 MG
     Route: 048
     Dates: start: 201211

REACTIONS (1)
  - Death [Fatal]
